FAERS Safety Report 5089894-7 (Version None)
Quarter: 2006Q3

REPORT INFORMATION
  Report Type: 
  Country: None (occurrence: None)
  Receive Date: 20060727
  Receipt Date: 20060524
  Transmission Date: 20061208
  Serious: Yes (Other)
  Sender: FDA-Public Use
  Company Number: 2006068941

PATIENT
  Sex: Male
  Weight: 113.3993 kg

DRUGS (18)
  1. LYRICA [Suspect]
     Indication: DIABETIC NEUROPATHY
     Dosage: 150 MG (75 MG, 2 IN 1 D), UNKNOWN
     Route: 065
  2. NEURONTIN [Suspect]
     Indication: DIABETIC NEUROPATHY
     Dosage: UNKNOWN (3 IN 1 D)
     Route: 065
  3. XANAX [Concomitant]
  4. AMBIEN [Concomitant]
  5. NOVOLIN N [Concomitant]
  6. AMITRIPTYLINE HCL [Concomitant]
  7. MOTRIN [Concomitant]
  8. NEXIUM [Concomitant]
  9. LASIX [Concomitant]
  10. IRBESARTAN [Concomitant]
  11. LOPID [Concomitant]
  12. TOPROL-XL [Concomitant]
  13. PRAVACHOL [Concomitant]
  14. GLUCOVANCE [Concomitant]
  15. ZOLOFT [Concomitant]
  16. PLAQUENIL [Concomitant]
  17. NOVOLIN R [Concomitant]
  18. ASPIRIN [Concomitant]

REACTIONS (5)
  - ERYTHEMA [None]
  - IRRITABILITY [None]
  - MOOD ALTERED [None]
  - OEDEMA PERIPHERAL [None]
  - PARAESTHESIA [None]
